FAERS Safety Report 26024241 (Version 1)
Quarter: 2025Q4

REPORT INFORMATION
  Report Type: Spontaneous
  Country: EG (occurrence: EG)
  Receive Date: 20251111
  Receipt Date: 20251111
  Transmission Date: 20260118
  Serious: Yes (Other)
  Sender: HIKMA
  Company Number: EG-HIKMA PHARMACEUTICALS-EG-H14001-25-11840

PATIENT
  Age: 54 Year
  Sex: Male
  Weight: 70 kg

DRUGS (8)
  1. LEUCOVORIN CALCIUM [Suspect]
     Active Substance: LEUCOVORIN CALCIUM
     Indication: Colon cancer
     Dosage: 285 MILLIGRAM, QOW, OVER 2 HOURS FOR DAY 1, DAY 2
     Route: 042
  2. LEUCOVORIN CALCIUM [Suspect]
     Active Substance: LEUCOVORIN CALCIUM
     Dosage: 285 MILLIGRAM, QOW, OVER 2 HOURS FOR DAY 1, DAY 2, DOSE 7
     Route: 042
     Dates: start: 20250827
  3. OXALIPLATIN [Suspect]
     Active Substance: OXALIPLATIN
     Indication: Colon cancer
     Dosage: 121 MILLIGRAM, QOW OVER 2 HOURS
     Route: 042
  4. OXALIPLATIN [Suspect]
     Active Substance: OXALIPLATIN
     Dosage: 121 MILLIGRAM, QOW OVER 2 HOURS, DOSE 7
     Route: 042
     Dates: start: 20250827
  5. FLUOROURACIL [Suspect]
     Active Substance: FLUOROURACIL
     Indication: Colon cancer
     Dosage: 1425 MILLIGRAM, QOW, OVER 22 HOURS ON DAY 1 AND 2
     Route: 042
  6. FLUOROURACIL [Suspect]
     Active Substance: FLUOROURACIL
     Dosage: 1425 MILLIGRAM, QOW, OVER 22 HOURS ON DAY 1 AND 2, DOSE 7
     Route: 042
     Dates: start: 20250827
  7. DEXAMETHASONE [Concomitant]
     Active Substance: DEXAMETHASONE
     Indication: Chemotherapy side effect prophylaxis
     Dosage: UNK
     Route: 042
  8. EM EX [Concomitant]
     Indication: Chemotherapy side effect prophylaxis
     Dosage: UNK
     Route: 042

REACTIONS (2)
  - Neutropenia [Recovered/Resolved]
  - Leukopenia [Recovered/Resolved]

NARRATIVE: CASE EVENT DATE: 20250910
